FAERS Safety Report 7142612-0 (Version None)
Quarter: 2010Q4

REPORT INFORMATION
  Report Type: 
  Country: None (occurrence: None)
  Receive Date: 20101207
  Receipt Date: 20101130
  Transmission Date: 20110411
  Serious: Yes (Hospitalization)
  Sender: FDA-Public Use
  Company Number: US-B.I. PHARMACEUTICALS,INC./RIDGEFIELD-2010-BP-12907BP

PATIENT
  Sex: Female

DRUGS (2)
  1. DULCOLAX [Suspect]
     Indication: IRRITABLE BOWEL SYNDROME
     Dosage: 10 MG
     Route: 054
     Dates: start: 20080101
  2. DULCOLAX [Suspect]
     Indication: CONSTIPATION

REACTIONS (1)
  - BLADDER PROLAPSE [None]
